FAERS Safety Report 25874453 (Version 1)
Quarter: 2025Q4

REPORT INFORMATION
  Report Type: Spontaneous
  Country: US (occurrence: None)
  Receive Date: 20251002
  Receipt Date: 20251002
  Transmission Date: 20260118
  Serious: Yes (Hospitalization, Disabling, Other)
  Sender: FDA-CTU
  Company Number: None

PATIENT
  Age: 44 Year
  Sex: Female
  Weight: 49.95 kg

DRUGS (3)
  1. DOXYCYCLINE HYCLATE [Suspect]
     Active Substance: DOXYCYCLINE HYCLATE
     Indication: Localised infection
     Dosage: OTHER QUANTITY : 2 CAPSULE(S);?FREQUENCY : TWICE A DAY;?
     Route: 048
     Dates: start: 20250925, end: 20250929
  2. XANAX [Concomitant]
     Active Substance: ALPRAZOLAM
  3. MAGNESIUM [Concomitant]
     Active Substance: MAGNESIUM

REACTIONS (14)
  - Tachyphrenia [None]
  - Panic attack [None]
  - Vertigo [None]
  - Tremor [None]
  - Feeling cold [None]
  - Brain fog [None]
  - Fatigue [None]
  - Eye pain [None]
  - Derealisation [None]
  - Dissociation [None]
  - Head discomfort [None]
  - Insomnia [None]
  - Anxiety [None]
  - Impaired quality of life [None]

NARRATIVE: CASE EVENT DATE: 20250929
